FAERS Safety Report 18414763 (Version 1)
Quarter: 2020Q4

REPORT INFORMATION
  Report Type: Spontaneous
  Country: US (occurrence: US)
  Receive Date: 20201022
  Receipt Date: 20201022
  Transmission Date: 20210114
  Serious: No
  Sender: FDA-Public Use
  Company Number: US-LUPIN PHARMACEUTICALS INC.-2020-05553

PATIENT
  Age: 63 Year
  Sex: Female

DRUGS (1)
  1. BIMATOPROST. [Suspect]
     Active Substance: BIMATOPROST
     Indication: SKIN COSMETIC PROCEDURE
     Dosage: UNK, EYELASH SOLUTION WAS APPLIED TO THE TOP EYELID MARGINS USING AN APPLICATOR
     Route: 065

REACTIONS (2)
  - Off label use [Unknown]
  - Iris hyperpigmentation [Recovering/Resolving]
